FAERS Safety Report 7624658-9 (Version None)
Quarter: 2011Q3

REPORT INFORMATION
  Report Type: 
  Country: None (occurrence: None)
  Receive Date: 20110720
  Receipt Date: 20110706
  Transmission Date: 20111222
  Serious: Yes (Hospitalization)
  Sender: FDA-Public Use
  Company Number: US-GENZYME-MOZO-1000515

PATIENT
  Sex: Male
  Weight: 122 kg

DRUGS (2)
  1. MOZOBIL [Suspect]
     Indication: HAEMATOPOIETIC STEM CELL MOBILISATION
     Dosage: UNK
     Route: 065
     Dates: start: 20110503, end: 20110503
  2. SARGRAMOSTIM [Suspect]
     Indication: HAEMATOPOIETIC STEM CELL MOBILISATION

REACTIONS (8)
  - CHEST PAIN [None]
  - HOT FLUSH [None]
  - MEDICAL DEVICE COMPLICATION [None]
  - COUGH [None]
  - PARAESTHESIA [None]
  - CHEST DISCOMFORT [None]
  - DYSPNOEA [None]
  - NAUSEA [None]
